FAERS Safety Report 12556292 (Version 1)
Quarter: 2016Q3

REPORT INFORMATION
  Report Type: Spontaneous
  Country: CN (occurrence: CN)
  Receive Date: 20160714
  Receipt Date: 20160714
  Transmission Date: 20161109
  Serious: Yes (Other)
  Sender: FDA-Public Use
  Company Number: CN-ASTRAZENECA-2016SE75274

PATIENT
  Age: 50 Year
  Sex: Female

DRUGS (2)
  1. OSIMERTINIB [Suspect]
     Active Substance: OSIMERTINIB
     Indication: ADENOCARCINOMA
     Route: 048
  2. OTHER NUTRITIONAL MEDICINES [Concomitant]

REACTIONS (3)
  - Metastasis [Unknown]
  - Metastases to lymph nodes [Unknown]
  - Metastases to liver [Unknown]
